FAERS Safety Report 8435855-7 (Version None)
Quarter: 2012Q2

REPORT INFORMATION
  Report Type: 
  Country: None (occurrence: None)
  Receive Date: 20120614
  Receipt Date: 20120612
  Transmission Date: 20120825
  Serious: Yes (Death, Hospitalization)
  Sender: FDA-Public Use
  Company Number: GB-ROCHE-1007625

PATIENT
  Sex: Female

DRUGS (2)
  1. LUCENTIS [Suspect]
     Indication: AGE-RELATED MACULAR DEGENERATION
     Route: 050
     Dates: start: 20090211
  2. LUCENTIS [Suspect]
     Route: 050
     Dates: start: 20100630

REACTIONS (4)
  - ATRIAL FIBRILLATION [None]
  - PNEUMONIA ASPIRATION [None]
  - PARKINSON'S DISEASE [None]
  - DEATH [None]
